FAERS Safety Report 13643336 (Version 1)
Quarter: 2017Q2

REPORT INFORMATION
  Report Type: Spontaneous
  Country: GB (occurrence: GB)
  Receive Date: 20170612
  Receipt Date: 20170612
  Transmission Date: 20170830
  Serious: Yes (Other)
  Sender: FDA-Public Use
  Company Number: GB-ASTRAZENECA-2017SE60964

PATIENT
  Age: 78 Year
  Sex: Female
  Weight: 77 kg

DRUGS (17)
  1. ASPIRIN. [Concomitant]
     Active Substance: ASPIRIN
     Dosage: 1/DAY
  2. PARACETAMOL [Concomitant]
     Active Substance: ACETAMINOPHEN
     Dosage: TAKE ONE OR TWO TABLETS UP TO FOUR TIMES A DAY
     Dates: start: 20170216
  3. VENTOLIN [Concomitant]
     Active Substance: ALBUTEROL SULFATE
     Dosage: 1 AS NECESSARY
     Dates: start: 20170216
  4. FUSIDIC ACID [Concomitant]
     Active Substance: FUSIDIC ACID
     Dosage: 1/DAY
     Dates: start: 20170418, end: 20170425
  5. GLYCERYL TRINITRATE [Concomitant]
     Active Substance: NITROGLYCERIN
     Dosage: 1/ AS NECESSARY
     Dates: start: 20170216
  6. BISOPROLOL [Concomitant]
     Active Substance: BISOPROLOL
     Dosage: 1/DAY
     Dates: start: 20170216
  7. SENNA [Concomitant]
     Active Substance: SENNA LEAF\SENNOSIDES\SENNOSIDES A AND B
     Dosage: TAKE 1 OR 2 AT NIGHT
     Dates: start: 20170216
  8. TIOTROPIUM [Concomitant]
     Active Substance: TIOTROPIUM
     Dosage: 1/DAY
     Dates: start: 20170421, end: 20170521
  9. CLOPIDOGREL [Concomitant]
     Active Substance: CLOPIDOGREL BISULFATE
     Dosage: 1/DAY
     Dates: start: 20170216
  10. ACLIDINIUM BROMIDE [Suspect]
     Active Substance: ACLIDINIUM BROMIDE
     Route: 055
     Dates: start: 20170512
  11. FLUCLOXACILLIN [Concomitant]
     Active Substance: FLUCLOXACILLIN
     Dosage: 1/DAY
     Dates: start: 20170216
  12. LANSOPRAZOLE. [Concomitant]
     Active Substance: LANSOPRAZOLE
     Dosage: 1/DAY
     Dates: start: 20170216
  13. BETAHISTINE [Concomitant]
     Active Substance: BETAHISTINE
     Dosage: 1 -2 TABLETS 3 TIMES DAILY
  14. FERROUS FUMARATE [Concomitant]
     Active Substance: FERROUS FUMARATE
     Dosage: 1/DAY
     Dates: start: 20170216
  15. SERETIDE [Concomitant]
     Active Substance: FLUTICASONE PROPIONATE\SALMETEROL XINAFOATE
     Dosage: 1/DAY
     Dates: start: 20170216
  16. SPIRIVA [Concomitant]
     Active Substance: TIOTROPIUM BROMIDE MONOHYDRATE
     Dosage: 1/DAY
     Dates: start: 20170421, end: 20170512
  17. LIDOCAINE. [Concomitant]
     Active Substance: LIDOCAINE
     Dosage: APPLY THINLY UP TO 4 TIMES DAILY
     Dates: start: 20170512

REACTIONS (1)
  - Mouth ulceration [Recovering/Resolving]

NARRATIVE: CASE EVENT DATE: 20170523
